FAERS Safety Report 7035135-0 (Version None)
Quarter: 2010Q4

REPORT INFORMATION
  Report Type: 
  Country: None (occurrence: None)
  Receive Date: 20101008
  Receipt Date: 20101005
  Transmission Date: 20110411
  Serious: Yes (Death)
  Sender: FDA-Public Use
  Company Number: CHNY2010GB00496

PATIENT
  Age: 82 Year
  Sex: Female

DRUGS (6)
  1. FERROUS SULFATE TAB [Suspect]
     Indication: ANAEMIA
     Route: 048
  2. BENDROFLUMETHIAZIDE [Concomitant]
  3. FUROSEMIDE [Concomitant]
  4. LISINOPRIL [Concomitant]
  5. WARFARIN SODIUM [Concomitant]
  6. DIGOXIN [Concomitant]

REACTIONS (16)
  - CARDIAC CIRRHOSIS [None]
  - CARDIAC FAILURE [None]
  - CARDIAC HYPERTROPHY [None]
  - GASTRIC HAEMORRHAGE [None]
  - GASTRIC ULCER [None]
  - GASTRITIS EROSIVE [None]
  - LOWER RESPIRATORY TRACT INFECTION [None]
  - MYOCARDIAL ISCHAEMIA [None]
  - OESOPHAGEAL PERFORATION [None]
  - OESOPHAGEAL ULCER [None]
  - PLEURAL INFECTION [None]
  - PNEUMONIA [None]
  - PULMONARY CONGESTION [None]
  - PULMONARY OEDEMA [None]
  - RHEUMATIC HEART DISEASE [None]
  - WOUND DECOMPOSITION [None]
